FAERS Safety Report 24765247 (Version 2)
Quarter: 2025Q1

REPORT INFORMATION
  Report Type: Report from Study
  Country: US (occurrence: US)
  Receive Date: 20241223
  Receipt Date: 20250107
  Transmission Date: 20250409
  Serious: Yes (Hospitalization)
  Sender: ABBVIE
  Company Number: US-ABBVIE-6054457

PATIENT
  Age: 51 Year
  Sex: Male
  Weight: 76.657 kg

DRUGS (1)
  1. SKYRIZI [Suspect]
     Active Substance: RISANKIZUMAB-RZAA
     Indication: Psoriasis
     Route: 058
     Dates: start: 20230303

REACTIONS (5)
  - Coronary artery stenosis [Recovering/Resolving]
  - Dyspnoea [Recovering/Resolving]
  - Cough [Not Recovered/Not Resolved]
  - Chest discomfort [Recovering/Resolving]
  - Chest pain [Recovering/Resolving]

NARRATIVE: CASE EVENT DATE: 20240701
